FAERS Safety Report 24935555 (Version 1)
Quarter: 2025Q1

REPORT INFORMATION
  Report Type: Other
  Country: TR (occurrence: TR)
  Receive Date: 20250206
  Receipt Date: 20250206
  Transmission Date: 20250408
  Serious: Yes (Other)
  Sender: BIONPHARMA INC.
  Company Number: TR-Bion-014703

PATIENT
  Age: 44 Year
  Sex: Male

DRUGS (1)
  1. NAPROXEN SODIUM [Suspect]
     Active Substance: NAPROXEN SODIUM
     Indication: Ankylosing spondylitis

REACTIONS (1)
  - Chronic kidney disease [Unknown]
